FAERS Safety Report 4753265-0 (Version None)
Quarter: 2005Q3

REPORT INFORMATION
  Report Type: 
  Country: None (occurrence: None)
  Receive Date: 20050824
  Receipt Date: 20050815
  Transmission Date: 20060218
  Serious: Yes (Other)
  Sender: FDA-Public Use
  Company Number: 216950

PATIENT
  Age: 65 Year
  Sex: Female

DRUGS (2)
  1. AVASTIN [Suspect]
     Indication: COLORECTAL CANCER METASTATIC
  2. CAMPTOSAR [Concomitant]

REACTIONS (1)
  - NEUROPATHY PERIPHERAL [None]
